FAERS Safety Report 24672929 (Version 1)
Quarter: 2024Q4

REPORT INFORMATION
  Report Type: Spontaneous
  Country: IE (occurrence: IE)
  Receive Date: 20241128
  Receipt Date: 20241128
  Transmission Date: 20250115
  Serious: Yes (Hospitalization)
  Sender: ROCHE
  Company Number: None

PATIENT
  Age: 56 Year
  Sex: Female
  Weight: 120 kg

DRUGS (18)
  1. TRASTUZUMAB [Suspect]
     Active Substance: TRASTUZUMAB
     Indication: Colon cancer
     Dosage: 6 MG/KG, ON CYCLE 1 DAY 22 THEN DAY 1 AND DAY 22 OF EACH SUBSEQUENT 6 WEEK (42-DAY) CYCLE
     Route: 042
     Dates: start: 20240705, end: 20240726
  2. TRASTUZUMAB [Suspect]
     Active Substance: TRASTUZUMAB
     Dosage: 6 MG/KG, ON CYCLE 1 DAY 22 THEN DAY 1 AND DAY 22 OF EACH SUBSEQUENT 6 WEEK (42-DAY) CYCLE
     Route: 042
     Dates: start: 20240726, end: 20240901
  3. TRASTUZUMAB [Suspect]
     Active Substance: TRASTUZUMAB
     Dosage: 994 MILLIGRAM
     Route: 042
     Dates: start: 20240902, end: 20240916
  4. OXALIPLATIN [Suspect]
     Active Substance: OXALIPLATIN
     Indication: Colon cancer
     Dosage: 85 MG/M2 EVERY 2 WEEKS ON DAYS 1, 15 AND 29 OF EACH 6-WEEK (42-DAY) CYCLE
     Route: 042
     Dates: start: 20240705, end: 20240802
  5. LOPERAMIDE HYDROCHLORIDE [Suspect]
     Active Substance: LOPERAMIDE HYDROCHLORIDE
     Indication: Prophylaxis against diarrhoea
     Dosage: FOUR TIME A DAY THERAPY INFORMATION: #1 DOSAGE TEXT: 2-4 MG, 4X/ DAY #1 PHARMA. DOSE FORM/PARENT/ROU
     Route: 048
     Dates: start: 20240705
  6. FLUOROURACIL [Suspect]
     Active Substance: FLUOROURACIL
     Indication: Colon cancer
     Dosage: 400 MG/M2, QOW FREQUENCY: 1 FREQUENCY TIME: 2 FREQUENCY TIME UNIT: WEEKS
     Route: 042
     Dates: start: 20240705, end: 20240802
  7. FLUOROURACIL [Suspect]
     Active Substance: FLUOROURACIL
     Dosage: 4200 MILLIGRAM/SQ. METER EVERY 2 WEEKS ON DAYS
     Route: 042
     Dates: start: 20240705, end: 20240802
  8. FLUOROURACIL [Suspect]
     Active Substance: FLUOROURACIL
     Dosage: 2400 MG/M2, QOW FREQUENCY: 1 FREQUENCY TIME: 2 FREQUENCY TIME UNIT: WEEKS
     Route: 042
     Dates: start: 20240705, end: 20240802
  9. FLUOROURACIL [Suspect]
     Active Substance: FLUOROURACIL
     Dosage: 738 MG/M2, QOW FREQUENCY: 1 FREQUENCY TIME: 2 FREQUENCY TIME UNIT: WEEKS
     Route: 042
     Dates: start: 20240902, end: 20240916
  10. TUCATINIB [Suspect]
     Active Substance: TUCATINIB
     Indication: Colon cancer
     Dosage: 250 MG BID FREQUENCY: 1 FREQUENCY TIME: 12 FREQUENCY TIME UNIT: HOURS
     Route: 048
     Dates: start: 20240705, end: 20240813
  11. TUCATINIB [Suspect]
     Active Substance: TUCATINIB
     Dosage: 300 MG BID FREQUENCY: 1 FREQUENCY TIME: 12 FREQUENCY TIME UNIT: HOURS
     Route: 048
     Dates: start: 20240705, end: 20240818
  12. TUCATINIB [Suspect]
     Active Substance: TUCATINIB
     Dosage: 200 MG BID FREQUENCY: 1 FREQUENCY TIME: 12 FREQUENCY TIME UNIT: HOURS
     Route: 048
     Dates: start: 20240902, end: 20240916
  13. LEUCOVORIN CALCIUM [Suspect]
     Active Substance: LEUCOVORIN CALCIUM
     Indication: Colon cancer
     Dosage: 400 MG/M2 EVERY 2 WEEKSON DAYS 1, 15 AND 29 OF EACH 6-WEEK CYCLE
     Route: 042
     Dates: start: 20240705, end: 20240802
  14. LEUCOVORIN CALCIUM [Suspect]
     Active Substance: LEUCOVORIN CALCIUM
     Dosage: 922 MG/M2 EVERY 2 WEEKSON DAYS 1, 15 AND 29 OF EACH 6-WEEK CYCLE
     Route: 042
     Dates: start: 20240902, end: 20240916
  15. METFORMIN [Concomitant]
     Active Substance: METFORMIN HYDROCHLORIDE
     Indication: Type 2 diabetes mellitus
     Dates: start: 20210713, end: 20240813
  16. METFORMIN [Concomitant]
     Active Substance: METFORMIN HYDROCHLORIDE
     Indication: Restless legs syndrome
     Dosage: UNK
     Dates: start: 20240923, end: 20240925
  17. LOSARTAN [Concomitant]
     Active Substance: LOSARTAN
     Indication: Product used for unknown indication
     Dates: start: 2014, end: 20240814
  18. ESCITALOPRAM [Concomitant]
     Active Substance: ESCITALOPRAM OXALATE
     Indication: Depression
     Dates: start: 2018, end: 20240814

REACTIONS (7)
  - Acute kidney injury [Recovering/Resolving]
  - Blood creatinine increased [Unknown]
  - Diarrhoea [Unknown]
  - Oliguria [Unknown]
  - Dehydration [Recovering/Resolving]
  - Blood sodium decreased [Recovered/Resolved with Sequelae]
  - Hyponatraemia [Recovering/Resolving]

NARRATIVE: CASE EVENT DATE: 20240813
